FAERS Safety Report 5664462-4 (Version None)
Quarter: 2008Q1

REPORT INFORMATION
  Report Type: 
  Country: None (occurrence: None)
  Receive Date: 20080314
  Receipt Date: 20080306
  Transmission Date: 20080703
  Serious: Yes (Hospitalization)
  Sender: FDA-Public Use
  Company Number: A0697002A

PATIENT
  Age: 74 Year
  Sex: Female

DRUGS (17)
  1. ADVAIR DISKUS 100/50 [Suspect]
     Indication: CHRONIC OBSTRUCTIVE PULMONARY DISEASE
     Dosage: 1PUFF TWICE PER DAY
     Route: 055
  2. FLUTICASONE/SALMETEROL [Suspect]
     Indication: CHRONIC OBSTRUCTIVE PULMONARY DISEASE
     Dosage: 1PUFF TWICE PER DAY
     Route: 055
     Dates: start: 20071022
  3. SEREVENT [Suspect]
     Indication: CHRONIC OBSTRUCTIVE PULMONARY DISEASE
     Route: 055
     Dates: start: 20071001, end: 20071101
  4. ENABLEX [Concomitant]
  5. LEXAPRO [Concomitant]
  6. BENICAR HCT [Concomitant]
  7. FUROSEMIDE [Concomitant]
  8. ALLOPURINOL [Concomitant]
  9. OMEPRAZOLE [Concomitant]
  10. LEVOTHYROXINE SODIUM [Concomitant]
  11. ASPIRIN [Concomitant]
  12. VITAMINS [Concomitant]
  13. FLU SHOT [Concomitant]
  14. BENADRYL [Concomitant]
  15. OXYBUTYNIN CHLORIDE [Concomitant]
  16. NEBULIZER [Concomitant]
  17. UNKNOWN MEDICATION [Concomitant]

REACTIONS (11)
  - CHEST PAIN [None]
  - CONTUSION [None]
  - DRUG INEFFECTIVE [None]
  - DYSPNOEA [None]
  - FALL [None]
  - FOOT FRACTURE [None]
  - NASOPHARYNGITIS [None]
  - OXYGEN SATURATION DECREASED [None]
  - PAIN [None]
  - TOOTH ABSCESS [None]
  - WHEEZING [None]
